FAERS Safety Report 6120559-6 (Version None)
Quarter: 2009Q1

REPORT INFORMATION
  Report Type: 
  Country: None (occurrence: None)
  Receive Date: 20090312
  Receipt Date: 20090227
  Transmission Date: 20090719
  Serious: Yes (Hospitalization)
  Sender: FDA-Public Use
  Company Number: DSJ-2008-11873

PATIENT
  Age: 90 Year
  Sex: Female

DRUGS (3)
  1. OLMESARTAN MEDOXOMIL [Suspect]
     Indication: HYPERTENSION
     Dosage: 20 MG, PER ORAL
     Route: 048
     Dates: start: 20060101, end: 20080801
  2. CARVEDILOL [Suspect]
     Indication: HYPERTENSION
     Dosage: 10 MG, PER ORAL
     Route: 048
     Dates: start: 20060101, end: 20080801
  3. AMISALIN (PROCAINAMIDE HYDROCHLORIDE) (PROCAINAMIDE HYDROCHLORIDE) [Concomitant]

REACTIONS (4)
  - ADAMS-STOKES SYNDROME [None]
  - LOSS OF CONSCIOUSNESS [None]
  - PULSE ABSENT [None]
  - SUPRAVENTRICULAR TACHYCARDIA [None]
